FAERS Safety Report 24127098 (Version 1)
Quarter: 2024Q3

REPORT INFORMATION
  Report Type: Report from Study
  Country: DE (occurrence: DE)
  Receive Date: 20240723
  Receipt Date: 20240723
  Transmission Date: 20241016
  Serious: Yes (Hospitalization)
  Sender: NORDIC PHARMA
  Company Number: DE-002147023-NVSC2023DE262193

PATIENT
  Sex: Male

DRUGS (12)
  1. METHOTREXATE [Suspect]
     Active Substance: METHOTREXATE
     Indication: Psoriatic arthropathy
     Dosage: 20 MG, QW
     Route: 058
     Dates: start: 20201125
  2. METHOTREXATE [Suspect]
     Active Substance: METHOTREXATE
     Indication: Psoriatic arthropathy
     Dosage: 20 MG
     Route: 058
     Dates: start: 20201125
  3. ACEMETACIN [Concomitant]
     Active Substance: ACEMETACIN
     Indication: Psoriatic arthropathy
     Dosage: 180 MG
     Route: 065
     Dates: start: 20220919
  4. ACEMETACIN [Concomitant]
     Active Substance: ACEMETACIN
     Indication: Psoriatic arthropathy
     Dosage: 180 MG, 7 DAYS PER WEEK
     Route: 065
     Dates: start: 20220919
  5. ACEMETACIN [Concomitant]
     Active Substance: ACEMETACIN
     Indication: Psoriatic arthropathy
     Dosage: 180 MG
     Route: 065
     Dates: start: 20201215, end: 20220903
  6. ACEMETACIN [Concomitant]
     Active Substance: ACEMETACIN
     Indication: Psoriatic arthropathy
     Dosage: 180 MG
     Route: 065
     Dates: start: 20201215
  7. NAPROXEN [Concomitant]
     Active Substance: NAPROXEN
     Indication: Psoriatic arthropathy
     Dosage: 500 MG
     Route: 065
     Dates: start: 20220904, end: 20220918
  8. TALTZ [Concomitant]
     Active Substance: IXEKIZUMAB
     Indication: Psoriatic arthropathy
     Dosage: 80 MG
     Route: 065
     Dates: start: 20201202
  9. TALTZ [Concomitant]
     Active Substance: IXEKIZUMAB
     Indication: Psoriatic arthropathy
     Dosage: 160 MG
     Route: 065
     Dates: start: 20201202
  10. TALTZ [Concomitant]
     Active Substance: IXEKIZUMAB
     Indication: Psoriatic arthropathy
     Dosage: 80 MG
     Route: 065
     Dates: start: 20201202, end: 20220829
  11. COSENTYX [Concomitant]
     Active Substance: SECUKINUMAB
     Indication: Psoriatic arthropathy
     Dosage: 300 MG
     Route: 065
     Dates: start: 20220909
  12. COSENTYX [Concomitant]
     Active Substance: SECUKINUMAB
     Indication: Psoriatic arthropathy
     Dosage: 300 MG, QMO
     Route: 050
     Dates: start: 20220909

REACTIONS (9)
  - Joint swelling [Unknown]
  - Pancreatic steatosis [Unknown]
  - Rotator cuff syndrome [Unknown]
  - Arthralgia [Unknown]
  - Hepatic steatosis [Unknown]
  - Meniscus injury [Not Recovered/Not Resolved]
  - Cholelithiasis [Unknown]
  - Nasopharyngitis [Unknown]
  - Synovial cyst [Unknown]

NARRATIVE: CASE EVENT DATE: 20230116
